FAERS Safety Report 17443588 (Version 1)
Quarter: 2020Q1

REPORT INFORMATION
  Report Type: Spontaneous
  Country: US (occurrence: US)
  Receive Date: 20200220
  Receipt Date: 20200220
  Transmission Date: 20200409
  Serious: No
  Sender: FDA-Public Use
  Company Number: None

PATIENT
  Age: 28 Year
  Sex: Male
  Weight: 63 kg

DRUGS (8)
  1. SOOLANTRA [Concomitant]
     Active Substance: IVERMECTIN
  2. AZELASTINE NASAL SPRAY [Concomitant]
     Active Substance: AZELASTINE
  3. LASTACAFT [Suspect]
     Active Substance: ALCAFTADINE
     Indication: EYE ALLERGY
     Dosage: ?          QUANTITY:1 DROP(S);?
     Route: 047
     Dates: start: 20191113
  4. TRUVADA [Concomitant]
     Active Substance: EMTRICITABINE\TENOFOVIR DISOPROXIL FUMARATE
  5. BUDESONIDE W/SALINE NASAL RINSE [Concomitant]
  6. TAZORAC CREAM [Concomitant]
  7. ACZONE [Concomitant]
     Active Substance: DAPSONE
  8. ZYRTEC//CETIRIZINE [Concomitant]

REACTIONS (2)
  - Ocular hyperaemia [None]
  - Eye inflammation [None]

NARRATIVE: CASE EVENT DATE: 20200220
